FAERS Safety Report 6580470-3 (Version None)
Quarter: 2010Q1

REPORT INFORMATION
  Report Type: 
  Country: None (occurrence: None)
  Receive Date: 20100203
  Receipt Date: 20100119
  Transmission Date: 20100710
  Serious: Yes (Other)
  Sender: FDA-Public Use
  Company Number: 2010S1000458

PATIENT
  Age: 40 Year
  Sex: Female

DRUGS (2)
  1. PHOSPHOSODA FLAVOR NOT SPECIFIED [Suspect]
     Indication: COLONOSCOPY
     Dosage: PO
     Route: 048
     Dates: start: 20050101
  2. COLACE [Concomitant]

REACTIONS (3)
  - DIALYSIS [None]
  - RENAL DISORDER [None]
  - RENAL IMPAIRMENT [None]
